FAERS Safety Report 5720888-1 (Version None)
Quarter: 2008Q2

REPORT INFORMATION
  Report Type: 
  Country: None (occurrence: None)
  Receive Date: 20080424
  Receipt Date: 20080409
  Transmission Date: 20081010
  Serious: Yes (Other)
  Sender: FDA-Public Use
  Company Number: SPV1-2008-00331

PATIENT
  Age: 15 Year
  Sex: Female
  Weight: 56.2 kg

DRUGS (2)
  1. VYVANSE [Suspect]
     Indication: ATTENTION DEFICIT/HYPERACTIVITY DISORDER
     Dosage: 70 MG, 1X/DAY:QD, ORAL
     Route: 048
     Dates: start: 20080122, end: 20080129
  2. BENADRYL [Concomitant]

REACTIONS (9)
  - AFFECTIVE DISORDER [None]
  - ANGER [None]
  - DIZZINESS [None]
  - HALLUCINATION [None]
  - HEADACHE [None]
  - OFF LABEL USE [None]
  - PANIC ATTACK [None]
  - PARAESTHESIA [None]
  - TREMOR [None]
